FAERS Safety Report 8170498-4 (Version None)
Quarter: 2012Q1

REPORT INFORMATION
  Report Type: 
  Country: None (occurrence: None)
  Receive Date: 20120110
  Receipt Date: 20111005
  Transmission Date: 20120608
  Serious: Yes (Other)
  Sender: FDA-Public Use
  Company Number: M-11-024

PATIENT
  Sex: Female

DRUGS (1)
  1. DOXYCYCLINE [Suspect]
     Dosage: ORAL (047)
     Route: 048

REACTIONS (2)
  - FUNGAL INFECTION [None]
  - PRODUCT QUALITY ISSUE [None]
